FAERS Safety Report 22635321 (Version 1)
Quarter: 2023Q2

REPORT INFORMATION
  Report Type: Spontaneous
  Country: JP (occurrence: JP)
  Receive Date: 20230623
  Receipt Date: 20230623
  Transmission Date: 20230721
  Serious: Yes (Other)
  Sender: FDA-Public Use
  Company Number: JP-PFIZER INC-PV202300108821

PATIENT
  Age: 64 Year
  Sex: Male
  Weight: 61.4 kg

DRUGS (10)
  1. SUTENT [Suspect]
     Active Substance: SUNITINIB MALATE
     Indication: Gastrointestinal stromal tumour
     Dosage: 3 DF, 1X/DAY
     Route: 048
     Dates: start: 20230424, end: 20230509
  2. CALONAL [Concomitant]
     Active Substance: ACETAMINOPHEN
  3. ZICTHORU [Concomitant]
  4. AMITIZA [Concomitant]
     Active Substance: LUBIPROSTONE
  5. MAGNESIUM OXIDE [Concomitant]
     Active Substance: MAGNESIUM OXIDE
  6. ESOMEPRAZOLE [Concomitant]
     Active Substance: ESOMEPRAZOLE
  7. SULFAMETHOXAZOLE\TRIMETHOPRIM [Concomitant]
     Active Substance: SULFAMETHOXAZOLE\TRIMETHOPRIM
  8. BONALON [Concomitant]
     Active Substance: ALENDRONATE SODIUM
  9. PEMAFIBRATE [Concomitant]
     Active Substance: PEMAFIBRATE
  10. PREDONINE [Concomitant]
     Active Substance: PREDNISOLONE

REACTIONS (2)
  - Interstitial lung disease [Recovered/Resolved]
  - Disease recurrence [Recovered/Resolved]

NARRATIVE: CASE EVENT DATE: 20230509
